FAERS Safety Report 7329044 (Version 3)
Quarter: 2014Q1

REPORT INFORMATION
  Report Type: Spontaneous
  Country: US (occurrence: US)
  Receive Date: 20100323
  Receipt Date: 20140128
  Transmission Date: 20141002
  Serious: Yes (Hospitalization, Other)
  Sender: FDA-Public Use
  Company Number: US-ROCHE-649307

PATIENT
  Age: 14 Year
  Sex: Female
  Weight: 140 kg

DRUGS (3)
  1. ACCUTANE [Suspect]
     Indication: ACNE CYSTIC
     Dosage: DOSE: 40 MG ALTERNATING WITH 80 MG EVERY OTHER DAY
     Route: 065
  2. ACCUTANE [Suspect]
     Route: 065
     Dates: start: 19910620, end: 19910826
  3. ACCUTANE [Suspect]
     Route: 065
     Dates: start: 19911028, end: 199204

REACTIONS (17)
  - Crohn^s disease [Unknown]
  - Colitis ulcerative [Unknown]
  - Inflammatory bowel disease [Unknown]
  - Anal fissure [Unknown]
  - Haemorrhage [Unknown]
  - Gastroenteritis [Unknown]
  - Depression [Unknown]
  - Skin exfoliation [Unknown]
  - Lip pain [Unknown]
  - Infection [Unknown]
  - Onychomycosis [Unknown]
  - Cellulitis [Unknown]
  - Paronychia [Unknown]
  - Acne [Unknown]
  - White blood cell count decreased [Recovered/Resolved]
  - Blood cholesterol increased [Recovered/Resolved]
  - Blood triglycerides increased [Unknown]
